FAERS Safety Report 10235822 (Version 1)
Quarter: 2014Q2

REPORT INFORMATION
  Report Type: Spontaneous
  Country: US (occurrence: None)
  Receive Date: 20140612
  Receipt Date: 20140612
  Transmission Date: 20141212
  Serious: Yes (Other)
  Sender: FDA-Public Use
  Company Number: None

PATIENT
  Sex: Female

DRUGS (2)
  1. MAKENA 250MG PER ML THER-RX [Suspect]
     Indication: PREMATURE LABOUR
     Route: 030
     Dates: start: 20140522
  2. PRENATAL VITAMINS [Concomitant]

REACTIONS (1)
  - Abortion spontaneous [None]
